FAERS Safety Report 5092448-X (Version None)
Quarter: 2006Q3

REPORT INFORMATION
  Report Type: 
  Country: None (occurrence: None)
  Receive Date: 20060825
  Receipt Date: 20060622
  Transmission Date: 20061208
  Serious: Yes (Other)
  Sender: FDA-Public Use
  Company Number: 2006095547

PATIENT
  Sex: Male

DRUGS (2)
  1. BEXTRA [Suspect]
     Indication: PAIN IN EXTREMITY
     Dosage: 40 MG (20 MG, 2 IN 1 D),
  2. VIOXX [Suspect]
     Indication: DRUG USE FOR UNKNOWN INDICATION
     Dates: start: 20040120

REACTIONS (1)
  - STEVENS-JOHNSON SYNDROME [None]
